FAERS Safety Report 18819641 (Version 1)
Quarter: 2021Q1

REPORT INFORMATION
  Report Type: Spontaneous
  Country: US (occurrence: US)
  Receive Date: 20210201
  Receipt Date: 20210201
  Transmission Date: 20210419
  Serious: Yes (Hospitalization)
  Sender: FDA-Public Use
  Company Number: US-BAYER-2021-043256

PATIENT
  Age: 50 Year
  Sex: Female

DRUGS (1)
  1. LEVONORGESTREL IUS [UNKNOWN] [Suspect]
     Active Substance: LEVONORGESTREL
     Route: 015

REACTIONS (5)
  - Pelvic abscess [None]
  - Toxic shock syndrome streptococcal [None]
  - Device related infection [None]
  - Complication of device insertion [None]
  - Pelvic infection [None]
